FAERS Safety Report 9931704 (Version 1)
Quarter: 2014Q1

REPORT INFORMATION
  Report Type: Spontaneous
  Country: US (occurrence: US)
  Receive Date: 20140228
  Receipt Date: 20140228
  Transmission Date: 20141002
  Serious: Yes (Death, Other)
  Sender: FDA-Public Use
  Company Number: US-JNJFOC-20140212435

PATIENT
  Age: 8 Year
  Sex: Female

DRUGS (7)
  1. DOXORUBICIN [Suspect]
     Indication: NEUROBLASTOMA
     Dosage: CUMULATIVE DOSAGE WAS 300 MG/M^2
     Route: 042
  2. CYCLOPHOSPHAMIDE [Suspect]
     Indication: NEUROBLASTOMA
     Dosage: CUMULATIVE DOSAGE WAS 16,800 MG/M^2
     Route: 065
  3. VINCRISTINE [Suspect]
     Indication: NEUROBLASTOMA
     Dosage: CYCLES 1, 2, 4, 6, AND 8
     Route: 065
  4. CISPLATIN [Suspect]
     Indication: NEUROBLASTOMA
     Dosage: CUMULATIVE DOSAGE WAS 600 MG/M^2
     Route: 065
  5. ETOPOSIDE [Suspect]
     Indication: NEUROBLASTOMA
     Dosage: CUMULATIVE DOSAGE WAS 1800 MG/M^2
     Route: 065
  6. RADIOTHERAPY [Suspect]
     Indication: NEUROBLASTOMA
     Dosage: 2,100 CGY TO SKULL AND RIGHT ADRENAL
     Route: 065
  7. MONOCLONAL ANTIBODIES [Suspect]
     Indication: NEUROBLASTOMA
     Route: 065

REACTIONS (3)
  - Acute febrile neutrophilic dermatosis [Fatal]
  - Myelodysplastic syndrome [Unknown]
  - Off label use [Unknown]
